FAERS Safety Report 9233706 (Version 1)
Quarter: 2013Q2

REPORT INFORMATION
  Report Type: Spontaneous
  Country: US (occurrence: US)
  Receive Date: 20130416
  Receipt Date: 20130416
  Transmission Date: 20140414
  Serious: No
  Sender: FDA-Public Use
  Company Number: US-BANPHARM-20130918

PATIENT
  Age: 77 Year
  Sex: Female
  Weight: 70.31 kg

DRUGS (7)
  1. ALEVE LIQUID GELS 220MG [Suspect]
     Indication: ARTHRITIS
     Dosage: 1 DF,
     Route: 048
     Dates: start: 201203
  2. BLOOD PRESSURE MEDICATION [Concomitant]
  3. PRILOSEC [Concomitant]
  4. MULTIVITAMIN [Concomitant]
  5. VITAMIN C [Concomitant]
  6. BAYER 325 MG GENUINE/REGIMEN [Concomitant]
     Route: 048
  7. VYTORIN [Concomitant]

REACTIONS (1)
  - Drug ineffective [Unknown]
